FAERS Safety Report 5800484-8 (Version None)
Quarter: 2008Q3

REPORT INFORMATION
  Report Type: 
  Country: None (occurrence: None)
  Receive Date: 20080703
  Receipt Date: 20080624
  Transmission Date: 20090109
  Serious: Yes (Other)
  Sender: FDA-Public Use
  Company Number: A0735875A

PATIENT
  Age: 29 Year
  Sex: Male

DRUGS (4)
  1. WELLBUTRIN [Suspect]
     Indication: DEPRESSION
     Route: 048
  2. PAXIL [Suspect]
     Indication: DEPRESSION
     Route: 048
  3. PEG-INTRON [Suspect]
     Indication: HEPATITIS C
     Dates: start: 20080307
  4. REBETOL [Suspect]
     Indication: HEPATITIS C
     Route: 048
     Dates: start: 20080307

REACTIONS (9)
  - AGGRESSION [None]
  - ALCOHOL POISONING [None]
  - ALCOHOL USE [None]
  - CHILLS [None]
  - DIZZINESS [None]
  - DRUG ABUSE [None]
  - INSOMNIA [None]
  - IRRITABILITY [None]
  - PYREXIA [None]
